FAERS Safety Report 20660260 (Version 1)
Quarter: 2022Q1

REPORT INFORMATION
  Report Type: Spontaneous
  Country: US (occurrence: None)
  Receive Date: 20220331
  Receipt Date: 20220331
  Transmission Date: 20220423
  Serious: Yes (Death)
  Sender: FDA-Public Use
  Company Number: None

PATIENT
  Age: 70 Year
  Sex: Male
  Weight: 87.5 kg

DRUGS (1)
  1. ALVIMOPAN [Suspect]
     Active Substance: ALVIMOPAN
     Indication: Cystoprostatectomy
     Dosage: FREQUENCY : TWICE A DAY;?
     Route: 048
     Dates: start: 20220317, end: 20220319

REACTIONS (2)
  - Ventricular fibrillation [None]
  - Cardio-respiratory arrest [None]

NARRATIVE: CASE EVENT DATE: 20220320
